FAERS Safety Report 7820105-2 (Version None)
Quarter: 2011Q4

REPORT INFORMATION
  Report Type: 
  Country: None (occurrence: None)
  Receive Date: 20111018
  Receipt Date: 20111007
  Transmission Date: 20120403
  Serious: Yes (Hospitalization)
  Sender: FDA-Public Use
  Company Number: FR-PFIZER INC-2011246584

PATIENT
  Age: 78 Year
  Sex: Male

DRUGS (10)
  1. MARSILID PHOSPHATE TAB [Suspect]
     Indication: DEPRESSION
     Dosage: 75 MG, UNK
     Route: 048
     Dates: start: 19910101, end: 20110825
  2. MARSILID PHOSPHATE TAB [Suspect]
     Dosage: 25 MG, UNK
     Route: 048
     Dates: end: 20110915
  3. CORDARONE [Suspect]
     Dosage: UNK
     Route: 048
  4. ASPIRIN [Suspect]
     Dosage: 75 MG, UNK
     Route: 048
     Dates: end: 20110901
  5. MARSILID PHOSPHATE TAB [Suspect]
     Dosage: 25 MG, UNK
     Route: 048
     Dates: start: 20110826, end: 20110902
  6. NEXIUM [Suspect]
     Dosage: UNK
     Route: 048
  7. PERINDOPRIL ERBUMINE [Suspect]
     Dosage: 7.5 MG, UNK
     Route: 048
     Dates: end: 20110826
  8. PREVISCAN [Suspect]
     Dosage: 20 MG, UNK
     Route: 048
     Dates: end: 20110831
  9. CRESTOR [Suspect]
     Dosage: 10 MG, UNK
     Route: 048
     Dates: end: 20110826
  10. INDAPAMIDE [Suspect]
     Dosage: 1.5 MG, UNK
     Route: 048
     Dates: end: 20110826

REACTIONS (2)
  - HYPERTENSION [None]
  - ORTHOSTATIC HYPOTENSION [None]
